FAERS Safety Report 10598174 (Version 3)
Quarter: 2015Q1

REPORT INFORMATION
  Report Type: Spontaneous
  Country: PE (occurrence: PE)
  Receive Date: 20141121
  Receipt Date: 20150317
  Transmission Date: 20150720
  Serious: Yes (Other)
  Sender: FDA-Public Use
  Company Number: PE-PFIZER INC-2014317856

PATIENT
  Age: 58 Year
  Sex: Female

DRUGS (3)
  1. FOLIC ACID. [Concomitant]
     Active Substance: FOLIC ACID
     Indication: ANAEMIA
     Dosage: UNK
     Dates: start: 201410, end: 201410
  2. METHOTREXATE [Concomitant]
     Active Substance: METHOTREXATE
     Indication: FIBROMYALGIA
     Dosage: UNK
     Dates: start: 201410, end: 201410
  3. LYRICA [Suspect]
     Active Substance: PREGABALIN
     Dosage: 150 MG THRICE OR TWICE DAILY
     Route: 048
     Dates: start: 201408

REACTIONS (5)
  - Fall [Not Recovered/Not Resolved]
  - Fibromyalgia [Unknown]
  - Musculoskeletal disorder [Not Recovered/Not Resolved]
  - Ankle fracture [Recovered/Resolved]
  - Anaemia [Unknown]

NARRATIVE: CASE EVENT DATE: 201411
